FAERS Safety Report 10025368 (Version 2)
Quarter: 2015Q2

REPORT INFORMATION
  Report Type: Spontaneous
  Country: MY (occurrence: MY)
  Receive Date: 20140320
  Receipt Date: 20150519
  Transmission Date: 20150821
  Serious: Yes (Life-Threatening, Hospitalization, Other)
  Sender: FDA-Public Use
  Company Number: MY-GLAXOSMITHKLINE-B0978138A

PATIENT
  Age: 69 Year
  Sex: Female

DRUGS (1)
  1. ZINNAT [Suspect]
     Active Substance: CEFUROXIME AXETIL
     Indication: SINUSITIS
     Dosage: 250 MG, BID
     Route: 048
     Dates: start: 20140205, end: 20140205

REACTIONS (5)
  - Bronchospasm [Recovered/Resolved]
  - Hypotension [Recovered/Resolved]
  - Anaphylactic shock [Recovered/Resolved]
  - Oxygen saturation decreased [Recovered/Resolved]
  - Dyspnoea [Recovered/Resolved]

NARRATIVE: CASE EVENT DATE: 20140205
